FAERS Safety Report 8378194 (Version 5)
Quarter: 2013Q2

REPORT INFORMATION
  Report Type: Spontaneous
  Country: US (occurrence: US)
  Receive Date: 20120131
  Receipt Date: 20130404
  Transmission Date: 20140414
  Serious: Yes (Hospitalization, Other)
  Sender: FDA-Public Use
  Company Number: US-US-EMD SERONO, INC.-7108647

PATIENT
  Age: 42 Year
  Sex: Female
  Weight: 109 kg

DRUGS (3)
  1. REBIF [Suspect]
     Indication: MULTIPLE SCLEROSIS
     Route: 058
     Dates: start: 20030807
  2. LYRICA [Concomitant]
     Indication: PRODUCT USED FOR UNKNOWN INDICATION
  3. VITAMIN D /00107901/ [Concomitant]
     Indication: VITAMIN D DEFICIENCY

REACTIONS (14)
  - Ovarian cyst [Recovered/Resolved]
  - Endometriosis [Recovered/Resolved]
  - Cellulitis [Recovered/Resolved]
  - Ankle fracture [Recovering/Resolving]
  - Adnexal torsion [Recovered/Resolved]
  - Fall [Unknown]
  - Ligament sprain [Unknown]
  - Impaired healing [Unknown]
  - Laryngospasm [Not Recovered/Not Resolved]
  - Gastrooesophageal reflux disease [Not Recovered/Not Resolved]
  - Hyperlipidaemia [Unknown]
  - Multiple sclerosis relapse [Unknown]
  - Hepatic enzyme increased [Unknown]
  - Hypothyroidism [Unknown]
